FAERS Safety Report 17034578 (Version 1)
Quarter: 2019Q4

REPORT INFORMATION
  Report Type: Spontaneous
  Country: NO (occurrence: NO)
  Receive Date: 20191115
  Receipt Date: 20191115
  Transmission Date: 20200122
  Serious: Yes (Hospitalization)
  Sender: FDA-Public Use
  Company Number: NO-UCBSA-2019046982

PATIENT
  Age: 41 Year
  Sex: Female

DRUGS (7)
  1. CIMZIA [Suspect]
     Active Substance: CERTOLIZUMAB PEGOL
     Indication: POLYARTHRITIS
     Dosage: 1 DOSAGE FORM
     Route: 058
     Dates: start: 20190820, end: 20190930
  2. NYCOPLUS FOLSYRE [Concomitant]
     Indication: PLANNING TO BECOME PREGNANT
     Route: 048
  3. ACETYLSALISYLSYRE ACTAVIS [Concomitant]
     Active Substance: ASPIRIN
     Indication: PLANNING TO BECOME PREGNANT
     Route: 048
  4. CALCIGRAN FORTE [Concomitant]
     Active Substance: CALCIUM CARBONATE\CHOLECALCIFEROL
     Indication: PRODUCT USED FOR UNKNOWN INDICATION
     Dosage: INDICATION: USE OF PREDNISOLON.
     Route: 048
  5. CIMZIA [Suspect]
     Active Substance: CERTOLIZUMAB PEGOL
     Indication: OFF LABEL USE
  6. PREDNISOLON [PREDNISOLONE] [Concomitant]
     Active Substance: PREDNISOLONE
     Indication: POLYARTHRITIS
     Dosage: GRADUAL REDUCTION.
     Route: 048
  7. ZYRTEC [Concomitant]
     Active Substance: CETIRIZINE HYDROCHLORIDE
     Indication: HYPERSENSITIVITY
     Route: 048

REACTIONS (3)
  - Vision blurred [Recovering/Resolving]
  - Angle closure glaucoma [Recovering/Resolving]
  - Off label use [Unknown]

NARRATIVE: CASE EVENT DATE: 20190820
